FAERS Safety Report 5596924-2 (Version None)
Quarter: 2007Q4

REPORT INFORMATION
  Report Type: 
  Country: None (occurrence: None)
  Receive Date: 20071220
  Receipt Date: 20071114
  Transmission Date: 20080405
  Serious: Yes (Hospitalization)
  Sender: FDA-Public Use
  Company Number: A03200706546

PATIENT
  Age: 79 Year
  Sex: Female

DRUGS (2)
  1. AMBIEN [Suspect]
     Indication: INSOMNIA
     Dosage: ORAL
     Route: 048
     Dates: start: 20070101, end: 20070101
  2. IBUPROFEN [Concomitant]

REACTIONS (3)
  - BONE PAIN [None]
  - DRUG INEFFECTIVE [None]
  - FALL [None]
